FAERS Safety Report 21823823 (Version 1)
Quarter: 2023Q1

REPORT INFORMATION
  Report Type: Spontaneous
  Country: US (occurrence: None)
  Receive Date: 20230104
  Receipt Date: 20230104
  Transmission Date: 20230418
  Serious: No
  Sender: FDA-Public Use
  Company Number: None

PATIENT
  Sex: 0

DRUGS (1)
  1. NARATRIPTAN [Suspect]
     Active Substance: NARATRIPTAN HYDROCHLORIDE

REACTIONS (1)
  - Drug ineffective [None]
